FAERS Safety Report 6088489-6 (Version None)
Quarter: 2009Q1

REPORT INFORMATION
  Report Type: 
  Country: None (occurrence: None)
  Receive Date: 20090219
  Receipt Date: 20090209
  Transmission Date: 20090719
  Serious: Yes (Hospitalization)
  Sender: FDA-Public Use
  Company Number: US025453

PATIENT
  Age: 25 Year
  Sex: Male

DRUGS (1)
  1. TRISENOX [Suspect]
     Indication: ACUTE PROMYELOCYTIC LEUKAEMIA
     Dosage: 10 MG QD INTRAVENOUS DRIP
     Route: 041
     Dates: start: 20090121

REACTIONS (4)
  - CHEST PAIN [None]
  - HAEMODYNAMIC INSTABILITY [None]
  - PERICARDIAL EFFUSION [None]
  - PLEURAL EFFUSION [None]
